FAERS Safety Report 10056965 (Version 2)
Quarter: 2014Q2

REPORT INFORMATION
  Report Type: Spontaneous
  Country: AR (occurrence: AR)
  Receive Date: 20140403
  Receipt Date: 20140410
  Transmission Date: 20141212
  Serious: Yes (Hospitalization)
  Sender: FDA-Public Use
  Company Number: AR-B.I. PHARMACEUTICALS,INC./RIDGEFIELD-2014-BI-14349RA

PATIENT
  Age: 78 Year
  Sex: Male
  Weight: 90 kg

DRUGS (4)
  1. PRADAXA [Suspect]
     Indication: CEREBROVASCULAR ACCIDENT PROPHYLAXIS
     Dosage: 300 MG
     Route: 048
     Dates: start: 20131001, end: 20140310
  2. PRADAXA [Suspect]
     Indication: ATRIAL FIBRILLATION
  3. LOSARTAN [Concomitant]
     Indication: HYPERTENSION
     Route: 048
  4. FLECAINIDA [Concomitant]
     Indication: ARRHYTHMIA
     Route: 048

REACTIONS (1)
  - Ischaemic stroke [Recovered/Resolved]
